FAERS Safety Report 15255735 (Version 1)
Quarter: 2018Q3

REPORT INFORMATION
  Report Type: Spontaneous
  Country: US (occurrence: US)
  Receive Date: 20180718
  Receipt Date: 20180718
  Transmission Date: 20181010
  Serious: Yes (Hospitalization)
  Sender: FDA-Public Use
  Company Number: None

PATIENT
  Age: 62 Year
  Sex: Male
  Weight: 103.96 kg

DRUGS (1)
  1. HYDROCHLOROTHIAZIDE/LISINOPRIL [Suspect]
     Active Substance: HYDROCHLOROTHIAZIDE\LISINOPRIL
     Indication: HYPERTENSION
     Dosage: ?          OTHER DOSE:25/20 MG;?
     Route: 048
     Dates: start: 20170622, end: 20170925

REACTIONS (1)
  - Angioedema [None]

NARRATIVE: CASE EVENT DATE: 20170925
